FAERS Safety Report 7837509 (Version 4)
Quarter: 2023Q4

REPORT INFORMATION
  Report Type: Spontaneous
  Country: NL (occurrence: NL)
  Receive Date: 20110302
  Receipt Date: 20231226
  Transmission Date: 20240110
  Serious: Yes (Death, Hospitalization, Other)
  Sender: FDA-Public Use
  Company Number: PHHY2011NL15104

PATIENT
  Age: 26 Year
  Sex: Female

DRUGS (13)
  1. CYCLOSPORINE [Suspect]
     Active Substance: CYCLOSPORINE
     Indication: Aplastic anaemia
     Dosage: 10 MG/KG, QD
     Route: 065
  2. CYCLOSPORINE [Suspect]
     Active Substance: CYCLOSPORINE
     Dosage: 5 MG/KG, BID
     Route: 065
  3. METHYLPREDNISOLONE [Suspect]
     Active Substance: METHYLPREDNISOLONE
     Indication: Aplastic anaemia
     Route: 065
  4. METHYLPREDNISOLONE [Suspect]
     Active Substance: METHYLPREDNISOLONE
     Route: 065
  5. METHYLPREDNISOLONE [Suspect]
     Active Substance: METHYLPREDNISOLONE
     Route: 065
  6. COLISTIN [Suspect]
     Active Substance: COLISTIN
     Indication: Neutropenia
     Dosage: UNK
     Route: 048
  7. TOBRAMYCIN [Concomitant]
     Active Substance: TOBRAMYCIN
     Indication: Product used for unknown indication
     Dosage: UNK
     Route: 048
  8. AMOXICILLIN [Concomitant]
     Active Substance: AMOXICILLIN
     Indication: Intrauterine infection
     Route: 065
  9. CLAVULANIC ACID [Concomitant]
     Active Substance: CLAVULANIC ACID
     Indication: Intrauterine infection
     Route: 065
  10. IMIPENEM [Concomitant]
     Active Substance: IMIPENEM
     Indication: Product used for unknown indication
     Route: 065
  11. MEROPENEM [Concomitant]
     Active Substance: MEROPENEM
     Indication: Staphylococcal bacteraemia
     Route: 065
  12. VANCOMYCIN [Concomitant]
     Active Substance: VANCOMYCIN
     Indication: Staphylococcal bacteraemia
     Route: 065
  13. FLUCLOXACILLIN [Concomitant]
     Active Substance: FLUCLOXACILLIN
     Indication: Staphylococcal bacteraemia
     Route: 065

REACTIONS (26)
  - Cerebral infarction [Fatal]
  - Cerebral haemorrhage [Fatal]
  - Sepsis [Fatal]
  - Staphylococcal bacteraemia [Fatal]
  - Pyrexia [Fatal]
  - Intrauterine infection [Fatal]
  - Anisocoria [Fatal]
  - Rash maculo-papular [Fatal]
  - Diarrhoea [Fatal]
  - Vomiting [Fatal]
  - Headache [Fatal]
  - Hypotension [Fatal]
  - Pancytopenia [Fatal]
  - Thrombocytopenia [Fatal]
  - Neutropenia [Fatal]
  - Gingival bleeding [Fatal]
  - Induced labour [Fatal]
  - Premature labour [Fatal]
  - Pneumonia [Fatal]
  - Pneumothorax [Fatal]
  - Dyspnoea [Fatal]
  - Hypoxia [Fatal]
  - Exposure during pregnancy [Fatal]
  - Coma scale abnormal [Fatal]
  - HLA marker study positive [Fatal]
  - Drug ineffective [Unknown]
